FAERS Safety Report 4374257-X (Version None)
Quarter: 2004Q2

REPORT INFORMATION
  Report Type: 
  Country: None (occurrence: None)
  Receive Date: 20040608
  Receipt Date: 20040608
  Transmission Date: 20050107
  Serious: Yes (Hospitalization)
  Sender: FDA-Public Use
  Company Number: None

PATIENT
  Age: 73 Year
  Sex: Female
  Weight: 68.9467 kg

DRUGS (16)
  1. PACLITAXEL [Suspect]
     Indication: OVARIAN CANCER
     Dosage: 175 MG/M2 IV - 3 HOURS
     Route: 042
     Dates: start: 20040219
  2. PACLITAXEL [Suspect]
     Indication: OVARIAN CANCER
     Dosage: 175 MG/M2 IV - 3 HOURS
     Route: 042
     Dates: start: 20040311
  3. PACLITAXEL [Suspect]
     Indication: OVARIAN CANCER
     Dosage: 175 MG/M2 IV - 3 HOURS
     Route: 042
     Dates: start: 20040401
  4. PACLITAXEL [Suspect]
     Indication: OVARIAN CANCER
     Dosage: 175 MG/M2 IV - 3 HOURS
     Route: 042
     Dates: start: 20040503
  5. CARBOPLATIN [Suspect]
     Dosage: AUC-5 IV 30 MINS
     Route: 042
     Dates: start: 20040219
  6. CARBOPLATIN [Suspect]
     Dosage: AUC-5 IV 30 MINS
     Route: 042
     Dates: start: 20040311
  7. CARBOPLATIN [Suspect]
     Dosage: AUC-5 IV 30 MINS
     Route: 042
     Dates: start: 20040401
  8. CARBOPLATIN [Suspect]
     Dosage: AUC-5 IV 30 MINS
     Route: 042
     Dates: start: 20040503
  9. PRINIVIL [Concomitant]
  10. DOCUSATE SODIUM [Concomitant]
  11. GEMCITABINE (ELI-LILLY) [Suspect]
     Indication: OVARIAN CANCER
     Dosage: 800MG/M2 IV -30 MIN
     Route: 042
     Dates: start: 20040219
  12. GEMCITABINE (ELI-LILLY) [Suspect]
     Indication: OVARIAN CANCER
     Dosage: 800MG/M2 IV -30 MIN
     Route: 042
     Dates: start: 20040226
  13. GEMCITABINE (ELI-LILLY) [Suspect]
     Indication: OVARIAN CANCER
     Dosage: 800MG/M2 IV -30 MIN
     Route: 042
     Dates: start: 20040311
  14. GEMCITABINE (ELI-LILLY) [Suspect]
     Indication: OVARIAN CANCER
     Dosage: 800MG/M2 IV -30 MIN
     Route: 042
     Dates: start: 20040318
  15. GEMCITABINE (ELI-LILLY) [Suspect]
     Indication: OVARIAN CANCER
     Dosage: 800MG/M2 IV -30 MIN
     Route: 042
     Dates: start: 20040401
  16. GEMCITABINE (ELI-LILLY) [Suspect]
     Indication: OVARIAN CANCER
     Dosage: 800MG/M2 IV -30 MIN
     Route: 042
     Dates: start: 20040502

REACTIONS (7)
  - BACTERIA STOOL IDENTIFIED [None]
  - DIARRHOEA [None]
  - INFECTION [None]
  - LEUKOCYTOSIS [None]
  - NAUSEA [None]
  - RENAL FAILURE ACUTE [None]
  - VOMITING [None]
